FAERS Safety Report 8245232-X (Version None)
Quarter: 2012Q1

REPORT INFORMATION
  Report Type: 
  Country: None (occurrence: None)
  Receive Date: 20120329
  Receipt Date: 20120319
  Transmission Date: 20120608
  Serious: Yes (Other)
  Sender: FDA-Public Use
  Company Number: US-MYLANLABS-2012S1006059

PATIENT
  Sex: Female

DRUGS (1)
  1. ALPRAZOLAM [Suspect]
     Indication: ANXIETY
     Route: 048
     Dates: start: 20120301, end: 20120301

REACTIONS (2)
  - DRUG HYPERSENSITIVITY [None]
  - CHEST DISCOMFORT [None]
